FAERS Safety Report 7138291-9 (Version None)
Quarter: 2010Q4

REPORT INFORMATION
  Report Type: 
  Country: None (occurrence: None)
  Receive Date: 20101206
  Receipt Date: 20101123
  Transmission Date: 20110411
  Serious: Yes (Hospitalization)
  Sender: FDA-Public Use
  Company Number: DE-ROCHE-743737

PATIENT
  Sex: Male
  Weight: 108 kg

DRUGS (2)
  1. CAPECITABINE [Suspect]
     Indication: RECTAL CANCER
     Dosage: LAST DOSE PRIOR TO SAE: 19 NOV 2010
     Route: 048
     Dates: start: 20101020
  2. OXALIPLATIN [Suspect]
     Indication: RECTAL CANCER
     Dosage: FROM D1, 8,15.22 AND 29., DATE OF LAST DOSE PRIOR TO SAE: 17 NOV 2010
     Route: 042
     Dates: start: 20101020

REACTIONS (2)
  - INTESTINAL OBSTRUCTION [None]
  - PYREXIA [None]
